FAERS Safety Report 5186449-0 (Version None)
Quarter: 2006Q4

REPORT INFORMATION
  Report Type: 
  Country: None (occurrence: None)
  Receive Date: 20061220
  Receipt Date: 20061213
  Transmission Date: 20070319
  Serious: Yes (Disabling)
  Sender: FDA-Public Use
  Company Number: US-AMGEN-US203582

PATIENT
  Sex: Female

DRUGS (5)
  1. PANITUMUMAB [Suspect]
     Indication: COLORECTAL CANCER
     Route: 042
     Dates: start: 20060508, end: 20061211
  2. OXALIPLATIN [Suspect]
     Route: 042
  3. LEUCOVORIN CALCIUM [Concomitant]
     Route: 042
  4. FLUOROURACIL [Concomitant]
     Route: 042
  5. AVASTIN [Concomitant]
     Route: 042

REACTIONS (3)
  - CONTUSION [None]
  - NEUROPATHY PERIPHERAL [None]
  - RASH [None]
